FAERS Safety Report 8749375 (Version 3)
Quarter: 2012Q4

REPORT INFORMATION
  Report Type: 
  Country: US (occurrence: None)
  Receive Date: 20120808
  Receipt Date: 20120827
  Transmission Date: 20130627
  Serious: Yes (Death, Hospitalization)
  Sender: FDA-Public Use
  Company Number: AUR-APL-2012-03392

PATIENT
  Age: 65 Year
  Sex: Male

DRUGS (4)
  1. LEVETIRACETAM (LEVETIRACETAM) [Suspect]
     Indication: PRODUCT USED FOR UNKNOWN INDICATION
  2. VITAMIN C (ASCORBIC ACID) [Suspect]
     Indication: SMALL CELL LUNG CANCER METASTATIC
     Dosage: (2 IN 1 WK), UNKNOWN
  3. VISCUM ALBUM FRUIT [Suspect]
     Indication: SMALL CELL LUNG CANCER METASTATIC
     Dosage: (1 IN 3 D), UNKNOWN
  4. VALPROIC ACID [Suspect]

REACTIONS (7)
  - Convulsive threshold lowered [None]
  - Convulsion [None]
  - Cerebral haemorrhage [None]
  - Fatigue [None]
  - Confusional state [None]
  - Hemiparesis [None]
  - Oedema [None]
